FAERS Safety Report 6154127-7 (Version None)
Quarter: 2009Q2

REPORT INFORMATION
  Report Type: 
  Country: None (occurrence: None)
  Receive Date: 20090414
  Receipt Date: 20090413
  Transmission Date: 20091009
  Serious: Yes (Other)
  Sender: FDA-Public Use
  Company Number: US-BAYER-200840374NA

PATIENT
  Sex: Female

DRUGS (1)
  1. MIRENA [Suspect]
     Indication: UTERINE LEIOMYOMA
     Dosage: CONTINUOUS
     Route: 015
     Dates: start: 20081101

REACTIONS (2)
  - BREAST CANCER [None]
  - UTERINE LEIOMYOMA [None]
